FAERS Safety Report 8904104 (Version 1)
Quarter: 2012Q4

REPORT INFORMATION
  Report Type: 
  Country: DE (occurrence: DE)
  Receive Date: 20121112
  Receipt Date: 20121112
  Transmission Date: 20130627
  Serious: Yes (Death, Hospitalization)
  Sender: FDA-Public Use
  Company Number: DE-ASTRAZENECA-2012SE85116

PATIENT
  Sex: Male

DRUGS (6)
  1. SEROQUEL [Suspect]
     Indication: PSYCHOTIC DISORDER
     Dosage: Serouel^s dosage was increased until 1000 mg
     Route: 048
     Dates: end: 20111107
  2. DIAZEPAM [Suspect]
     Indication: PSYCHOTIC DISORDER
     Route: 048
  3. HALOPERIDOL [Suspect]
     Indication: PSYCHOTIC DISORDER
     Route: 048
  4. ZYPREXA [Suspect]
     Indication: PSYCHOTIC DISORDER
     Route: 065
  5. ZOPICLONE [Suspect]
     Indication: SLEEP DISORDER
     Route: 048
     Dates: start: 20111120, end: 20111120
  6. TAVOR [Suspect]
     Indication: PSYCHOTIC DISORDER
     Dosage: 1-4 MG, 1 DF unknown frequency
     Route: 048

REACTIONS (7)
  - Brain death [Fatal]
  - Electrocardiogram QT prolonged [Fatal]
  - Dizziness [Fatal]
  - Vomiting [Fatal]
  - Gastrointestinal obstruction [Fatal]
  - Tachycardia [Fatal]
  - Syncope [Fatal]
